FAERS Safety Report 9158018 (Version 2)
Quarter: 2013Q1

REPORT INFORMATION
  Report Type: Spontaneous
  Country: US (occurrence: US)
  Receive Date: 20130312
  Receipt Date: 20130315
  Transmission Date: 20140127
  Serious: Yes (Hospitalization)
  Sender: FDA-Public Use
  Company Number: US-ROCHE-1196891

PATIENT
  Sex: Female

DRUGS (3)
  1. PERJETA [Suspect]
     Indication: BREAST CANCER METASTATIC
     Route: 065
     Dates: start: 201302
  2. HERCEPTIN [Suspect]
     Indication: BREAST CANCER METASTATIC
     Route: 065
     Dates: start: 201302
  3. DOCETAXEL [Concomitant]
     Indication: BREAST CANCER METASTATIC
     Route: 065
     Dates: start: 201302

REACTIONS (6)
  - Hypertension [Unknown]
  - Blood glucose increased [Unknown]
  - Dyspnoea [Unknown]
  - Tachycardia [Unknown]
  - Palpitations [Unknown]
  - Chills [Unknown]
